FAERS Safety Report 6542440-0 (Version None)
Quarter: 2010Q1

REPORT INFORMATION
  Report Type: 
  Country: None (occurrence: None)
  Receive Date: 20100119
  Receipt Date: 20100112
  Transmission Date: 20100710
  Serious: Yes (Other)
  Sender: FDA-Public Use
  Company Number: CA-ALLERGAN-1000428US

PATIENT
  Age: 63 Year
  Sex: Male

DRUGS (10)
  1. BOTULINUM TOXIN TYPE A [Suspect]
     Indication: MUSCLE SPASTICITY
     Dosage: 200 UNITS, SINGLE
     Route: 030
  2. BOTULINUM TOXIN TYPE A [Suspect]
     Indication: CEREBROVASCULAR ACCIDENT
  3. ANDROGEL [Concomitant]
     Dosage: 12.5 MG, QD
  4. LEVOTHYROXINE SODIUM [Concomitant]
     Dosage: 125 A?G, QD
  5. LIPITOR [Concomitant]
     Dosage: 20 MG, QD
  6. PREDNISONE [Concomitant]
     Dosage: 5 MG, QD
  7. PANTOPRAZOLE [Concomitant]
     Dosage: 40 MG, QD
  8. ENALAPRIL [Concomitant]
     Dosage: 20 MG, QD
  9. AGGRENOX [Concomitant]
     Dosage: 200 MG/25 MG, BID
  10. FOLIC ACID [Concomitant]
     Dosage: 5 MG, QD

REACTIONS (1)
  - FOOT DEFORMITY [None]
